FAERS Safety Report 16796093 (Version 1)
Quarter: 2019Q3

REPORT INFORMATION
  Report Type: Spontaneous
  Country: US (occurrence: US)
  Receive Date: 20190911
  Receipt Date: 20190911
  Transmission Date: 20191005
  Serious: No
  Sender: FDA-Public Use
  Company Number: US-ASTRAZENECA-2019SF26070

PATIENT
  Sex: Female

DRUGS (22)
  1. DICLOSENEC [Concomitant]
  2. VENTOLIN MDA [Concomitant]
  3. FLUTICASONE. [Concomitant]
     Active Substance: FLUTICASONE
  4. MUCINEX [Concomitant]
     Active Substance: GUAIFENESIN
  5. VITAMIN D [Concomitant]
     Active Substance: VITAMIN D NOS
  6. FLONASE [Concomitant]
     Active Substance: FLUTICASONE PROPIONATE
  7. PREDNISONE. [Concomitant]
     Active Substance: PREDNISONE
  8. OMEPRAZOLE. [Suspect]
     Active Substance: OMEPRAZOLE
     Dosage: 20.0MG UNKNOWN
     Route: 048
  9. VITAMIN C [Concomitant]
     Active Substance: ASCORBIC ACID
  10. MELATONIN [Concomitant]
     Active Substance: MELATONIN
  11. SINGULAIR [Concomitant]
     Active Substance: MONTELUKAST SODIUM
  12. FASENRA [Suspect]
     Active Substance: BENRALIZUMAB
     Indication: ASTHMA
     Dosage: 30.0MG/ML UNKNOWN
     Route: 058
     Dates: start: 20180607, end: 201908
  13. ASPIRIN. [Concomitant]
     Active Substance: ASPIRIN
  14. LEXAPRO [Concomitant]
     Active Substance: ESCITALOPRAM OXALATE
  15. GABAPENTIN. [Concomitant]
     Active Substance: GABAPENTIN
  16. BONIVA [Concomitant]
     Active Substance: IBANDRONATE SODIUM
     Dosage: 150,UNKNOWN
  17. LOVOSTATIN [Concomitant]
  18. OMEPRAZOLE. [Suspect]
     Active Substance: OMEPRAZOLE
     Dosage: 20.0MG UNKNOWN
     Route: 048
  19. DOXICYCLINE [Concomitant]
  20. PLAQUENIL [Concomitant]
     Active Substance: HYDROXYCHLOROQUINE SULFATE
  21. NOVOLIN 70/30 [Concomitant]
     Active Substance: INSULIN HUMAN
  22. LISINOPRIL. [Suspect]
     Active Substance: LISINOPRIL
     Dosage: 2025.0MG UNKNOWN
     Route: 048

REACTIONS (1)
  - Skin lesion [Unknown]
